FAERS Safety Report 6936729-0 (Version None)
Quarter: 2010Q3

REPORT INFORMATION
  Report Type: 
  Country: None (occurrence: None)
  Receive Date: 20100818
  Receipt Date: 20100805
  Transmission Date: 20110219
  Serious: Yes (Other)
  Sender: FDA-Public Use
  Company Number: 007773

PATIENT
  Sex: Male

DRUGS (16)
  1. KEPPRA [Suspect]
     Indication: CEREBRAL ATROPHY
     Dates: start: 20081201, end: 20090101
  2. LAMICTAL [Suspect]
     Indication: CONVULSION
     Dosage: (400 MG ORAL)
     Route: 048
     Dates: start: 20090101
  3. NEURONTIN [Suspect]
     Dosage: (2700 MG), (900MG)
  4. DILANTIN [Suspect]
     Indication: CEREBRAL ATROPHY
     Dates: start: 20081201, end: 20090101
  5. SERTRALINE HYDROCHLORIDE [Suspect]
     Dosage: (75 MG)
  6. EFFEXOR XR [Suspect]
     Indication: DEPRESSION
     Dosage: (187.5 MG ORAL), (112.5 MG ORAL)
     Route: 048
     Dates: start: 20070101
  7. SIMVASTATIN [Concomitant]
  8. COLACE [Concomitant]
  9. DEPAKOTE [Concomitant]
  10. BACLOFEN [Concomitant]
  11. TEMAZEPAM [Concomitant]
  12. LACTULOSE [Concomitant]
  13. BECONASE AQUA [Concomitant]
  14. LISINOPRIL [Concomitant]
  15. LOVENOX [Concomitant]
  16. HEPARIN [Concomitant]

REACTIONS (5)
  - CEREBRAL ARTERIOVENOUS MALFORMATION HAEMORRHAGIC [None]
  - CONVULSION [None]
  - DRUG HYPERSENSITIVITY [None]
  - DRUG INEFFECTIVE [None]
  - OVERDOSE [None]
